FAERS Safety Report 11584802 (Version 2)
Quarter: 2015Q4

REPORT INFORMATION
  Report Type: Spontaneous
  Country: US (occurrence: US)
  Receive Date: 20151001
  Receipt Date: 20151105
  Transmission Date: 20160304
  Serious: No
  Sender: FDA-Public Use
  Company Number: US-JNJFOC-20150909774

PATIENT
  Age: 84 Year
  Sex: Female
  Weight: 48.99 kg

DRUGS (2)
  1. NIZORAL A-D [Suspect]
     Active Substance: KETOCONAZOLE
     Indication: PRURITUS
     Dosage: ABOUT A QUARTER SIZE DOLLIPEVERY 2-3 DAYS FOR THE PAST 6-9 MONTHS
     Route: 061
  2. NIZORAL A-D [Suspect]
     Active Substance: KETOCONAZOLE
     Route: 061

REACTIONS (2)
  - Drug ineffective [Unknown]
  - Intentional product misuse [Unknown]
